FAERS Safety Report 7593536-6 (Version None)
Quarter: 2011Q3

REPORT INFORMATION
  Report Type: 
  Country: None (occurrence: None)
  Receive Date: 20110706
  Receipt Date: 20110624
  Transmission Date: 20111222
  Serious: Yes (Other)
  Sender: FDA-Public Use
  Company Number: US-BAYER-2011-005031

PATIENT
  Age: 32 Year
  Sex: Female
  Weight: 94.785 kg

DRUGS (2)
  1. DROSPIRENONE AND ETHINYL ESTRADIOL [Suspect]
     Indication: PREMENSTRUAL SYNDROME
     Dosage: UNK
     Route: 048
     Dates: start: 20080401, end: 20100201
  2. HYOSCYAMINE [Concomitant]
     Dosage: UNK
     Dates: start: 20100126

REACTIONS (5)
  - CHOLECYSTITIS [None]
  - EMOTIONAL DISTRESS [None]
  - INJURY [None]
  - GALLBLADDER DISORDER [None]
  - PAIN [None]
